FAERS Safety Report 6925569 (Version 3)
Quarter: 2020Q3

REPORT INFORMATION
  Report Type: Report from Study
  Country: US (occurrence: US)
  Receive Date: 20090303
  Receipt Date: 20090501
  Transmission Date: 20201104
  Serious: Yes (Death, Hospitalization)
  Sender: FDA-Public Use
  Company Number: US-ROCHE-617254

PATIENT
  Age: 65 Year
  Sex: Female

DRUGS (3)
  1. IBANDRONIC ACID. [Suspect]
     Active Substance: IBANDRONIC ACID
     Indication: OSTEOPOROSIS PROPHYLAXIS
     Dosage: FORM: PILL IT WAS NOT TAKEN IN OCTOBER AND NOVEMBER 2008, AS THE PATIENT WAS IN HOSPITAL
     Route: 065
     Dates: start: 2007, end: 200807
  2. IBANDRONIC ACID. [Suspect]
     Active Substance: IBANDRONIC ACID
     Dosage: INDICATION REPORTED AS:PREVENTION OF OSTEOPOROSIS FROM LONG TERM MAINTENANCE OF DOSE OF PREDNISONE
     Route: 042
     Dates: start: 2006
  3. PREDNISONE. [Concomitant]
     Active Substance: PREDNISONE
     Indication: ADDISON^S DISEASE

REACTIONS (4)
  - Hypophagia [Fatal]
  - Hip fracture [Recovering/Resolving]
  - Malnutrition [Fatal]
  - Sepsis [Fatal]

NARRATIVE: CASE EVENT DATE: 20080801
